FAERS Safety Report 6467082-7 (Version None)
Quarter: 2009Q4

REPORT INFORMATION
  Report Type: 
  Country: None (occurrence: None)
  Receive Date: 20091202
  Receipt Date: 20091119
  Transmission Date: 20100525
  Serious: Yes (Hospitalization)
  Sender: FDA-Public Use
  Company Number: AU-PFIZER INC-2009299760

PATIENT
  Age: 40 Year
  Sex: Female

DRUGS (2)
  1. ZELDOX [Suspect]
     Indication: BIPOLAR DISORDER
     Dosage: 160 MG, 1X/DAY
     Route: 048
  2. EPILIM [Concomitant]

REACTIONS (4)
  - EUPHORIC MOOD [None]
  - HISTRIONIC PERSONALITY DISORDER [None]
  - MANIA [None]
  - SUICIDAL IDEATION [None]
